FAERS Safety Report 18938046 (Version 3)
Quarter: 2023Q1

REPORT INFORMATION
  Report Type: Spontaneous
  Country: KR (occurrence: KR)
  Receive Date: 20210225
  Receipt Date: 20230221
  Transmission Date: 20230417
  Serious: Yes (Hospitalization, Other)
  Sender: FDA-Public Use
  Company Number: KR-ACCORD-218114

PATIENT
  Age: 7 Year
  Sex: Male

DRUGS (16)
  1. MYCOPHENOLATE MOFETIL [Suspect]
     Active Substance: MYCOPHENOLATE MOFETIL
     Indication: Immunosuppression
  2. TACROLIMUS [Suspect]
     Active Substance: TACROLIMUS
     Indication: Immunosuppression
     Dosage: 0.15 - 0.675 MG/KG/DAY
  3. METHYLPREDNISOLONE [Suspect]
     Active Substance: METHYLPREDNISOLONE
     Indication: Immunosuppression
  4. PREDNISOLONE [Suspect]
     Active Substance: PREDNISOLONE
     Indication: Immunosuppression
     Route: 048
  5. BACTRIM [Suspect]
     Active Substance: SULFAMETHOXAZOLE\TRIMETHOPRIM
     Indication: Prophylaxis
  6. VALGANCICLOVIR [Concomitant]
     Active Substance: VALGANCICLOVIR
     Dosage: FROM DAY 19 TO DAY 57
  7. GANCICLOVIR [Concomitant]
     Active Substance: GANCICLOVIR
     Dosage: FROM DAY 1 TO DAY 18
  8. AMLODIPINE [Concomitant]
     Active Substance: AMLODIPINE BESYLATE
  9. MINOXIDIL [Concomitant]
     Active Substance: MINOXIDIL
  10. CARVEDILOL [Concomitant]
     Active Substance: CARVEDILOL
  11. FERRIC HYDROXIDE POLYMALTOSE COMPLE [Concomitant]
  12. CALCIUM POLYSTYRENE SULFONATE [Concomitant]
     Active Substance: CALCIUM POLYSTYRENE SULFONATE
  13. SODIUM BICARBONATE [Concomitant]
     Active Substance: SODIUM BICARBONATE
  14. FUROSEMIDE [Concomitant]
     Active Substance: FUROSEMIDE
     Indication: Polyuria
  15. VALPROATE SODIUM [Concomitant]
     Active Substance: VALPROATE SODIUM
     Indication: Seizure
  16. LEVOTHYROXINE [Concomitant]
     Active Substance: LEVOTHYROXINE
     Indication: Hypothyroidism

REACTIONS (7)
  - Hypertension [Recovered/Resolved]
  - Dyspnoea exertional [Recovered/Resolved]
  - Bicytopenia [Recovered/Resolved]
  - Dyspepsia [Recovered/Resolved]
  - Liver disorder [Recovered/Resolved]
  - Oliguria [Recovered/Resolved]
  - Ascites [Recovered/Resolved]
